FAERS Safety Report 8613969-6 (Version None)
Quarter: 2012Q3

REPORT INFORMATION
  Report Type: 
  Country: None (occurrence: None)
  Receive Date: 20120823
  Receipt Date: 20120817
  Transmission Date: 20120928
  Serious: No
  Sender: FDA-Public Use
  Company Number: US-PFIZER INC-2012202989

PATIENT
  Age: 27 Year
  Sex: Female
  Weight: 76.6 kg

DRUGS (6)
  1. PREMARIN [Suspect]
     Indication: HORMONE REPLACEMENT THERAPY
     Dosage: UNK, ONCE IN EVERY MONTH
     Route: 030
     Dates: start: 19800101, end: 19800101
  2. PREMARIN [Suspect]
     Indication: MOOD SWINGS
  3. PERPHENAZINE AND AMITRIPTYLINE HCL [Concomitant]
     Indication: MOOD ALTERED
     Dosage: 4/25 MG, AS NEEDED
  4. PREMARIN [Suspect]
     Indication: MENOPAUSAL SYMPTOMS
  5. PERPHENAZINE AND AMITRIPTYLINE HCL [Concomitant]
     Indication: STRESS
  6. PREMARIN [Suspect]
     Indication: HOT FLUSH

REACTIONS (1)
  - DRUG INEFFECTIVE [None]
